FAERS Safety Report 7572479-8 (Version None)
Quarter: 2011Q2

REPORT INFORMATION
  Report Type: 
  Country: None (occurrence: None)
  Receive Date: 20110625
  Receipt Date: 20110617
  Transmission Date: 20111010
  Serious: Yes (Death, Other)
  Sender: FDA-Public Use
  Company Number: PHHY2011KR54733

PATIENT
  Age: 14 Month

DRUGS (10)
  1. CYCLOSPORINE [Suspect]
     Indication: STEM CELL TRANSPLANT
     Dosage: 150-300 NG/ML
  2. DOXORUBICIN HCL [Concomitant]
     Dosage: UNK
  3. CISPLATIN [Concomitant]
     Dosage: UNK
  4. NEUPOGEN [Concomitant]
     Dosage: 5-10 MG/KG ONCE DAILY
  5. TOPOTECAN [Concomitant]
     Dosage: UNK
  6. ETOPOSIDE [Concomitant]
     Dosage: UNK
  7. CARBOPLATIN [Concomitant]
     Dosage: UNK
  8. IFOSFAMIDE [Concomitant]
     Dosage: UNK
  9. CYCLOPHOSPHAMIDE [Concomitant]
     Dosage: UNK
  10. RADIOTHERAPY [Concomitant]
     Dosage: UNK

REACTIONS (3)
  - NEOPLASM MALIGNANT [None]
  - ACUTE GRAFT VERSUS HOST DISEASE [None]
  - CHRONIC GRAFT VERSUS HOST DISEASE [None]
